FAERS Safety Report 7020608-7 (Version None)
Quarter: 2010Q3

REPORT INFORMATION
  Report Type: 
  Country: None (occurrence: None)
  Receive Date: 20100929
  Receipt Date: 20100923
  Transmission Date: 20110219
  Serious: Yes (Hospitalization)
  Sender: FDA-Public Use
  Company Number: A0873215A

PATIENT
  Age: 70 Year
  Sex: Male

DRUGS (11)
  1. AVODART [Suspect]
     Indication: BENIGN PROSTATIC HYPERPLASIA
     Dosage: 1CAP PER DAY
     Route: 048
     Dates: start: 20091118
  2. CHOLESTEROL REDUCING AGENT NAME NOT KNOWN [Suspect]
     Route: 065
     Dates: end: 20100101
  3. CRESTOR [Concomitant]
  4. TYLENOL [Concomitant]
  5. NEXIUM [Concomitant]
  6. METOPROLOL (SLOW RELEASE) [Concomitant]
  7. ASPIRIN [Concomitant]
  8. BENICAR [Concomitant]
  9. UNSPECIFIED DRUG [Concomitant]
  10. ADVIL LIQUI-GELS [Concomitant]
  11. TRAMADOL [Concomitant]

REACTIONS (10)
  - ARTHRALGIA [None]
  - AUTOIMMUNE HEPATITIS [None]
  - BLOOD BILIRUBIN INCREASED [None]
  - FATIGUE [None]
  - HEPATIC ENZYME INCREASED [None]
  - HEPATITIS [None]
  - ILL-DEFINED DISORDER [None]
  - MYALGIA [None]
  - QUALITY OF LIFE DECREASED [None]
  - SERUM FERRITIN INCREASED [None]
